FAERS Safety Report 5087091-2 (Version None)
Quarter: 2006Q3

REPORT INFORMATION
  Report Type: 
  Country: None (occurrence: None)
  Receive Date: 20060821
  Receipt Date: 20060808
  Transmission Date: 20061208
  Serious: Yes (Hospitalization)
  Sender: FDA-Public Use
  Company Number: 2006099044

PATIENT
  Age: 39 Year
  Sex: Female

DRUGS (1)
  1. HALCION [Suspect]
     Indication: DRUG USE FOR UNKNOWN INDICATION
     Dosage: QD (1 IN 1 D), ORAL
     Route: 048

REACTIONS (3)
  - ALCOHOL USE [None]
  - GAMMA-GLUTAMYLTRANSFERASE INCREASED [None]
  - TONSILLITIS [None]
